FAERS Safety Report 5555559-8 (Version None)
Quarter: 2007Q4

REPORT INFORMATION
  Report Type: 
  Country: None (occurrence: None)
  Receive Date: 20071213
  Receipt Date: 20070822
  Transmission Date: 20080405
  Serious: No
  Sender: FDA-Public Use
  Company Number: US-AMGEN-KDL237012

PATIENT
  Sex: Male
  Weight: 78.5 kg

DRUGS (6)
  1. ENBREL [Suspect]
     Indication: RHEUMATOID ARTHRITIS
     Route: 058
     Dates: start: 20040101
  2. ARAVA [Suspect]
     Dates: start: 20020101
  3. LEVOTHROID [Concomitant]
  4. NOVOLOG [Concomitant]
  5. CRESTOR [Concomitant]
  6. ALTACE [Concomitant]

REACTIONS (6)
  - ARTHRALGIA [None]
  - JOINT SWELLING [None]
  - LEUKOPENIA [None]
  - MUSCULOSKELETAL PAIN [None]
  - OEDEMA PERIPHERAL [None]
  - PAIN IN EXTREMITY [None]
